FAERS Safety Report 20196187 (Version 4)
Quarter: 2022Q2

REPORT INFORMATION
  Report Type: Spontaneous
  Country: IN (occurrence: IN)
  Receive Date: 20211216
  Receipt Date: 20220622
  Transmission Date: 20220721
  Serious: Yes (Other)
  Sender: FDA-Public Use
  Company Number: IN-PFIZER INC-2021450782

PATIENT
  Age: 84 Year
  Sex: Female
  Weight: 53 kg

DRUGS (9)
  1. PALBOCICLIB [Suspect]
     Active Substance: PALBOCICLIB
     Dosage: 125 MG, 1X/DAY
     Route: 048
     Dates: start: 20210320
  2. PALBOCICLIB [Suspect]
     Active Substance: PALBOCICLIB
     Dosage: 100 MG, 1X/DAY
     Route: 048
     Dates: start: 20210422
  3. PALBOCICLIB [Suspect]
     Active Substance: PALBOCICLIB
     Dosage: 100 MG, 1X/DAY
     Route: 048
     Dates: start: 20210424
  4. LETROZOLE [Concomitant]
     Active Substance: LETROZOLE
     Dosage: OD
  5. CALCIUM [Concomitant]
     Active Substance: CALCIUM
     Dosage: OD
  6. OSTEOFOS [Concomitant]
     Dosage: 70 MG, WEEKLY
  7. ZOLEDRONIC ACID [Concomitant]
     Active Substance: ZOLEDRONIC ACID
     Dosage: UNK
     Dates: start: 20210422
  8. FULVESTRANT [Concomitant]
     Active Substance: FULVESTRANT
     Dosage: UNK
     Dates: start: 202103
  9. DEXORANGE [Concomitant]
     Dosage: OD

REACTIONS (10)
  - Haemoglobin decreased [Not Recovered/Not Resolved]
  - Blood pressure increased [Unknown]
  - Dyspnoea [Unknown]
  - White blood cell count decreased [Not Recovered/Not Resolved]
  - Neoplasm progression [Unknown]
  - Circumstance or information capable of leading to medication error [Unknown]
  - Neutrophil percentage increased [Not Recovered/Not Resolved]
  - Carbohydrate antigen 15-3 increased [Unknown]
  - Abdominal distension [Unknown]
  - Platelet count decreased [Unknown]

NARRATIVE: CASE EVENT DATE: 20211025
